FAERS Safety Report 7746128-X (Version None)
Quarter: 2011Q3

REPORT INFORMATION
  Report Type: 
  Country: None (occurrence: None)
  Receive Date: 20110913
  Receipt Date: 20110831
  Transmission Date: 20111222
  Serious: Yes (Hospitalization, Other)
  Sender: FDA-Public Use
  Company Number: US-ELI_LILLY_AND_COMPANY-US201012005034

PATIENT
  Sex: Female
  Weight: 78.02 kg

DRUGS (8)
  1. FORTEO [Suspect]
     Indication: OSTEOPOROSIS
     Dosage: 20 UG, DAILY (1/D)
     Route: 058
     Dates: start: 20101122
  2. SYNTHROID [Concomitant]
  3. ATENOLOL [Concomitant]
  4. MOBIC [Concomitant]
  5. FORTEO [Suspect]
     Dosage: 20 UG, QD
     Route: 058
  6. AMBIEN [Concomitant]
  7. CORTISONE ACETATE [Concomitant]
     Indication: PAIN
  8. CALCIUM + VITAMIN D [Concomitant]

REACTIONS (12)
  - HYPOAESTHESIA [None]
  - MUSCLE SPASMS [None]
  - HIP FRACTURE [None]
  - FALL [None]
  - HYPERTENSION [None]
  - PAIN [None]
  - DIASTOLIC DYSFUNCTION [None]
  - DYSPHONIA [None]
  - JOINT DISLOCATION [None]
  - BRONCHITIS [None]
  - AORTIC STENOSIS [None]
  - MYALGIA [None]
